FAERS Safety Report 14638357 (Version 1)
Quarter: 2018Q1

REPORT INFORMATION
  Report Type: Spontaneous
  Country: US (occurrence: US)
  Receive Date: 20180314
  Receipt Date: 20180314
  Transmission Date: 20180509
  Serious: Yes (Life-Threatening, Hospitalization, Other)
  Sender: FDA-Public Use
  Company Number: None

PATIENT
  Age: 69 Year
  Sex: Male
  Weight: 62.6 kg

DRUGS (1)
  1. OLMESARTAN MEDOXOMIL. [Suspect]
     Active Substance: OLMESARTAN MEDOXOMIL
     Indication: HYPERTENSION
     Route: 048
     Dates: start: 20170928, end: 20180211

REACTIONS (7)
  - Weight decreased [None]
  - Dyspepsia [None]
  - Renal failure [None]
  - Uveitis [None]
  - Vision blurred [None]
  - Blindness [None]
  - Diarrhoea [None]

NARRATIVE: CASE EVENT DATE: 20171215
